FAERS Safety Report 4721427-4 (Version None)
Quarter: 2005Q3

REPORT INFORMATION
  Report Type: 
  Country: None (occurrence: None)
  Receive Date: 20050721
  Receipt Date: 20040830
  Transmission Date: 20060218
  Serious: No
  Sender: FDA-Public Use
  Company Number: US-BRISTOL-MYERS SQUIBB COMPANY-12686697

PATIENT
  Age: 80 Year
  Sex: Female
  Weight: 49 kg

DRUGS (9)
  1. COUMADIN [Suspect]
     Indication: HEART VALVE REPLACEMENT
     Route: 048
     Dates: start: 20011101
  2. ACCUPRIL [Concomitant]
  3. ATENOLOL [Concomitant]
  4. FUROSEMIDE [Concomitant]
  5. ASACOL [Concomitant]
  6. LANOXIN [Concomitant]
  7. MULTI-VITAMIN [Concomitant]
  8. PEARL [Concomitant]
  9. CO-Q-10 [Concomitant]

REACTIONS (1)
  - PROTHROMBIN TIME RATIO INCREASED [None]
